FAERS Safety Report 9998998 (Version 10)
Quarter: 2014Q3

REPORT INFORMATION
  Report Type: Spontaneous
  Country: US (occurrence: None)
  Receive Date: 20140310
  Receipt Date: 20140919
  Transmission Date: 20150326
  Serious: Yes (Hospitalization, Other)
  Sender: FDA-Public Use
  Company Number: ADR-2014-00369

PATIENT
  Age: 44 Year
  Sex: Female
  Weight: 68.04 kg

DRUGS (22)
  1. ZOFRAN [Suspect]
     Active Substance: ONDANSETRON HYDROCHLORIDE
     Dosage: BY MOUTH DAILY AS NEEDED
     Route: 048
  2. FLORINEF ACETATE [Suspect]
     Active Substance: FLUDROCORTISONE ACETATE
     Route: 048
  3. MIDODRINE [Suspect]
     Active Substance: MIDODRINE
     Route: 048
  4. ZOLOFT [Suspect]
     Active Substance: SERTRALINE HYDROCHLORIDE
     Route: 048
  5. DOCUSATE SODIUM. [Suspect]
     Active Substance: DOCUSATE SODIUM
     Dosage: AS NEEDED FOR CONSTIPATION
     Route: 048
  6. BACITRACIN ZINC. [Suspect]
     Active Substance: BACITRACIN ZINC
     Dosage: 1 APPLICATION
     Route: 061
  7. BACLOFEN. [Suspect]
     Active Substance: BACLOFEN
     Dosage: 1 TID AND Q8H PRN
  8. ENEMEEZ [Suspect]
     Active Substance: DOCUSATE SODIUM
     Route: 054
  9. VITAMIN C [Suspect]
     Active Substance: ASCORBIC ACID
     Route: 048
  10. NYSTATIN-HYDRCORTISONE-DIPHEN [Suspect]
     Active Substance: DIPHENHYDRAMINE HYDROCHLORIDE\HYDROCORTISONE\NYSTATIN
     Dosage: AS NEEDED
  11. OXYCODONE-ACETAMINOPHEN [Suspect]
     Active Substance: ACETAMINOPHEN\OXYCODONE HYDROCHLORIDE
     Dosage: AS NEEDED FOR PAIN
     Route: 048
  12. XARELTO [Suspect]
     Active Substance: RIVAROXABAN
     Route: 048
  13. CEFDINIR. [Suspect]
     Active Substance: CEFDINIR
     Route: 048
  14. NEXIUM [Suspect]
     Active Substance: ESOMEPRAZOLE MAGNESIUM
     Dosage: IN THE MORNING?
  15. FLONASE [Suspect]
     Active Substance: FLUTICASONE PROPIONATE
  16. LIORESAL [Suspect]
     Active Substance: BACLOFEN
     Indication: MUSCLE SPASTICITY
  17. MIRALAX [Suspect]
     Active Substance: POLYETHYLENE GLYCOL 3350
     Dosage: DAILY AS NEEDED EVERY OTHER DAY
     Route: 048
  18. LORTAB [Suspect]
     Active Substance: ACETAMINOPHEN\HYDROCODONE BITARTRATE
     Dosage: UP TO FOUR TIMES A DAY
  19. LOVENOX [Suspect]
     Active Substance: ENOXAPARIN SODIUM
     Dosage: (7/18) BRIDGE AS PRESCRIBED
  20. TYLENOL [Suspect]
     Active Substance: ACETAMINOPHEN
     Route: 048
  21. OXYBUTYNIN [Suspect]
     Active Substance: OXYBUTYNIN
     Route: 048
  22. LIDODERM [Suspect]
     Active Substance: LIDOCAINE
     Dosage: APPLY 2 PATCHES ON BACK AT NIGHT

REACTIONS (22)
  - Mean platelet volume increased [None]
  - Device deployment issue [None]
  - Weight bearing difficulty [None]
  - Clonus [None]
  - Device dislocation [None]
  - Device malfunction [None]
  - Underdose [None]
  - Drug ineffective [None]
  - Post procedural complication [None]
  - Hypertonia [None]
  - Device kink [None]
  - Deep vein thrombosis [None]
  - Muscle spasticity [None]
  - Prothrombin time prolonged [None]
  - Suture rupture [None]
  - Urinary tract infection [None]
  - Protein urine present [None]
  - Urine homocystine present [None]
  - Blood glucose increased [None]
  - Specific gravity urine increased [None]
  - Red blood cells urine positive [None]
  - Urine leukocyte esterase positive [None]

NARRATIVE: CASE EVENT DATE: 20130826
